FAERS Safety Report 6529150-0 (Version None)
Quarter: 2009Q4

REPORT INFORMATION
  Report Type: 
  Country: None (occurrence: None)
  Receive Date: 20091231
  Receipt Date: 20091215
  Transmission Date: 20100525
  Serious: Yes (Other)
  Sender: FDA-Public Use
  Company Number: 2009AL007874

PATIENT
  Age: 46 Year
  Sex: Female

DRUGS (4)
  1. RISPERIDONE TABLETS USP, 4MG (ATLLC) [Suspect]
     Indication: MAJOR DEPRESSION
     Dosage: 4 MG; PO
     Route: 048
     Dates: start: 20070508
  2. VENLAFAXINE HCL [Suspect]
  3. QUETIAPINE [Concomitant]
  4. LITHIUM [Concomitant]

REACTIONS (2)
  - BREAST PAIN [None]
  - HYPERPROLACTINAEMIA [None]
